FAERS Safety Report 12346138 (Version 12)
Quarter: 2021Q4

REPORT INFORMATION
  Report Type: Spontaneous
  Country: US (occurrence: US)
  Receive Date: 20160509
  Receipt Date: 20211202
  Transmission Date: 20220304
  Serious: Yes (Other)
  Sender: FDA-Public Use
  Company Number: US-PFIZER INC-2016232836

PATIENT
  Age: 66 Year
  Sex: Female
  Weight: 94.331 kg

DRUGS (7)
  1. XELJANZ [Suspect]
     Active Substance: TOFACITINIB CITRATE
     Indication: Rheumatoid arthritis
     Dosage: 5 MG, 2X/DAY
     Route: 048
     Dates: start: 201510
  2. XELJANZ [Suspect]
     Active Substance: TOFACITINIB CITRATE
     Dosage: 5 MG, 2X/DAY
     Route: 048
     Dates: start: 201612
  3. XELJANZ [Suspect]
     Active Substance: TOFACITINIB CITRATE
     Dosage: 5 MG, 2X/DAY
     Route: 048
     Dates: end: 2018
  4. XELJANZ [Suspect]
     Active Substance: TOFACITINIB CITRATE
     Dosage: 5 MG, 2X/DAY
     Route: 048
     Dates: start: 2018, end: 201804
  5. LOSARTAN [Concomitant]
     Active Substance: LOSARTAN
     Indication: Hypertension
     Dosage: 100 MG, 1X/DAY
     Route: 048
  6. AMLODIPINE [Concomitant]
     Active Substance: AMLODIPINE BESYLATE
     Indication: Hypertension
     Dosage: 5 MG, 1X/DAY
     Route: 048
  7. OMEPRAZOLE [Concomitant]
     Active Substance: OMEPRAZOLE
     Dosage: 1 DF, ALTERNATE DAY, (1 CAPSULE EVERY OTHER DAY BY MOUTH)
     Route: 048
     Dates: end: 2018

REACTIONS (11)
  - Diverticulitis [Unknown]
  - Condition aggravated [Unknown]
  - Rheumatoid arthritis [Unknown]
  - Viral infection [Unknown]
  - Urinary tract infection [Unknown]
  - Herpes zoster [Recovered/Resolved]
  - Condition aggravated [Recovered/Resolved]
  - Immune system disorder [Unknown]
  - Synovial cyst [Recovered/Resolved]
  - Movement disorder [Unknown]
  - Pain [Unknown]

NARRATIVE: CASE EVENT DATE: 20160101
